FAERS Safety Report 24343663 (Version 1)
Quarter: 2024Q3

REPORT INFORMATION
  Report Type: Spontaneous
  Country: US (occurrence: US)
  Receive Date: 20240920
  Receipt Date: 20240920
  Transmission Date: 20241017
  Serious: No
  Sender: SANOFI AVENTIS
  Company Number: US-SANOFI-02212307

PATIENT
  Sex: Female

DRUGS (1)
  1. AVAPRO [Suspect]
     Active Substance: IRBESARTAN
     Dosage: UNK
     Dates: start: 201109

REACTIONS (1)
  - Blood pressure increased [Unknown]

NARRATIVE: CASE EVENT DATE: 20110101
